FAERS Safety Report 6083710-2 (Version None)
Quarter: 2009Q1

REPORT INFORMATION
  Report Type: 
  Country: None (occurrence: None)
  Receive Date: 20090219
  Receipt Date: 20090207
  Transmission Date: 20090719
  Serious: Yes (Other)
  Sender: FDA-Public Use
  Company Number: US-PFIZER INC-2009169393

PATIENT
  Sex: Female
  Weight: 48.526 kg

DRUGS (10)
  1. CHANTIX [Suspect]
     Indication: SMOKING CESSATION THERAPY
     Dosage: 0.5 MG, 2X/DAY
     Dates: start: 20090201
  2. LISDEXAMFETAMINE DIMESYLATE [Concomitant]
     Dosage: 70 MG, UNK
  3. PLAVIX [Concomitant]
     Dosage: UNK
  4. IBUPROFEN [Concomitant]
     Dosage: UNK
  5. CYMBALTA [Concomitant]
     Indication: ANXIETY
     Dosage: UNK
  6. PROVIGIL [Concomitant]
     Dosage: UNK
  7. CALCIUM MEFOLINATE [Concomitant]
     Dosage: UNK
  8. VALSARTAN [Concomitant]
     Dosage: UNK
  9. OVIDREL [Concomitant]
     Dosage: UNK
  10. BISELECT [Concomitant]
     Indication: HYPERTENSION
     Dosage: UNK

REACTIONS (5)
  - ARTERIAL OCCLUSIVE DISEASE [None]
  - BALANCE DISORDER [None]
  - BLOOD PRESSURE INCREASED [None]
  - DIZZINESS [None]
  - OEDEMA PERIPHERAL [None]
